FAERS Safety Report 7430942-4 (Version None)
Quarter: 2011Q2

REPORT INFORMATION
  Report Type: 
  Country: None (occurrence: None)
  Receive Date: 20110419
  Receipt Date: 20110419
  Transmission Date: 20111010
  Serious: No
  Sender: FDA-Public Use
  Company Number: None

PATIENT
  Sex: Female

DRUGS (1)
  1. REBIF [Suspect]
     Indication: MULTIPLE SCLEROSIS
     Dosage: TITRATE TIW SUB Q
     Route: 058
     Dates: start: 20110106, end: 20110201

REACTIONS (1)
  - DRUG HYPERSENSITIVITY [None]
